FAERS Safety Report 11215107 (Version 2)
Quarter: 2017Q3

REPORT INFORMATION
  Report Type: Spontaneous
  Country: US (occurrence: US)
  Receive Date: 20150624
  Receipt Date: 20170720
  Transmission Date: 20171127
  Serious: Yes (Life-Threatening, Other)
  Sender: FDA-Public Use
  Company Number: US-SUN PHARMACEUTICAL INDUSTRIES LTD-2015US-99348

PATIENT
  Age: 23 Year
  Sex: Male

DRUGS (2)
  1. OLANZAPINE. [Suspect]
     Active Substance: OLANZAPINE
     Indication: PRODUCT USED FOR UNKNOWN INDICATION
     Dosage: UNK
     Route: 048
  2. TRAZODONE [Suspect]
     Active Substance: TRAZODONE HYDROCHLORIDE
     Indication: PRODUCT USED FOR UNKNOWN INDICATION
     Dosage: UNK
     Route: 048

REACTIONS (10)
  - Dry skin [Unknown]
  - Intentional overdose [Unknown]
  - Agitation [Unknown]
  - Tachycardia [Recovering/Resolving]
  - Hyperreflexia [Unknown]
  - Miosis [Unknown]
  - Clonus [Unknown]
  - Hyperthermia [Unknown]
  - Electrocardiogram QT prolonged [Unknown]
  - Serotonin syndrome [Unknown]
